FAERS Safety Report 25745994 (Version 1)
Quarter: 2025Q3

REPORT INFORMATION
  Report Type: Spontaneous
  Country: US (occurrence: US)
  Receive Date: 20250901
  Receipt Date: 20250901
  Transmission Date: 20251021
  Serious: No
  Sender: pharmaAND
  Company Number: US-Pharmaand-2024000760

PATIENT
  Age: 69 Year
  Sex: Female

DRUGS (1)
  1. PEGASYS [Suspect]
     Active Substance: PEGINTERFERON ALFA-2A
     Indication: Polycythaemia vera
     Dates: start: 201609

REACTIONS (6)
  - COVID-19 [Not Recovered/Not Resolved]
  - Visual impairment [Unknown]
  - Dysphonia [Unknown]
  - Product quality issue [Recovered/Resolved]
  - Off label use [Recovered/Resolved]
  - Polycythaemia vera [Recovered/Resolved]
